FAERS Safety Report 24374532 (Version 3)
Quarter: 2024Q4

REPORT INFORMATION
  Report Type: Spontaneous
  Country: US (occurrence: US)
  Receive Date: 20240927
  Receipt Date: 20241210
  Transmission Date: 20250115
  Serious: No
  Sender: MERCK
  Company Number: US-009507513-2409USA008754

PATIENT
  Sex: Female
  Weight: 91.61 kg

DRUGS (12)
  1. WINREVAIR [Suspect]
     Active Substance: SOTATERCEPT-CSRK
     Indication: Product used for unknown indication
     Dosage: UNK
  2. WINREVAIR [Suspect]
     Active Substance: SOTATERCEPT-CSRK
     Dosage: UNK
     Dates: start: 2024
  3. REMODULIN [Suspect]
     Active Substance: TREPROSTINIL
     Indication: Pulmonary arterial hypertension
     Dosage: 0.083 MICROGRAM PER KILOGRAM, CONTINUOUS
     Route: 041
     Dates: start: 20210426
  4. ACETAMINOPHEN [Concomitant]
     Active Substance: ACETAMINOPHEN
  5. PANTOPRAZOLE SODIUM [Concomitant]
     Active Substance: PANTOPRAZOLE SODIUM
  6. TADALAFIL [Concomitant]
     Active Substance: TADALAFIL
  7. TRAMADOL HCL [Concomitant]
     Active Substance: TRAMADOL HYDROCHLORIDE
  8. SPIRONOLACTONE [Concomitant]
     Active Substance: SPIRONOLACTONE
  9. ONDANSETRON [Concomitant]
     Active Substance: ONDANSETRON
  10. TORSEMIDE [Concomitant]
     Active Substance: TORSEMIDE
  11. BENADRYL [Concomitant]
     Active Substance: DIPHENHYDRAMINE HYDROCHLORIDE
  12. CLINDAMYCIN HYDROCHLORIDE [Concomitant]
     Active Substance: CLINDAMYCIN HYDROCHLORIDE

REACTIONS (2)
  - Injection site bruising [Unknown]
  - Urticaria [Unknown]

NARRATIVE: CASE EVENT DATE: 20240101
